FAERS Safety Report 20213486 (Version 1)
Quarter: 2021Q4

REPORT INFORMATION
  Report Type: Spontaneous
  Country: US (occurrence: US)
  Receive Date: 20211221
  Receipt Date: 20211221
  Transmission Date: 20220303
  Serious: No
  Sender: FDA-Public Use
  Company Number: US-BAYER-2021A271093

PATIENT
  Age: 80 Year
  Sex: Male

DRUGS (2)
  1. LOTRIMIN ULTRA ANTIFUNGAL [Suspect]
     Active Substance: BUTENAFINE HYDROCHLORIDE
     Indication: Prophylaxis
     Dosage: UNK UNK, BID
     Route: 061
  2. LOTRIMIN ULTRA ANTIFUNGAL [Suspect]
     Active Substance: BUTENAFINE HYDROCHLORIDE
     Indication: Hyperhidrosis

REACTIONS (1)
  - Drug ineffective for unapproved indication [Unknown]
